FAERS Safety Report 12092166 (Version 2)
Quarter: 2016Q1

REPORT INFORMATION
  Report Type: Spontaneous
  Country: US (occurrence: US)
  Receive Date: 20160219
  Receipt Date: 20160302
  Transmission Date: 20160526
  Serious: Yes (Other)
  Sender: FDA-Public Use
  Company Number: US-HOSPIRA-3176460

PATIENT
  Age: 64 Year
  Sex: Male
  Weight: 106.58 kg

DRUGS (2)
  1. ELIQUIS [Suspect]
     Active Substance: APIXABAN
     Indication: CEREBROVASCULAR ACCIDENT PROPHYLAXIS
     Dosage: DAILY DOSAGE: 10 MG
     Route: 065
     Dates: start: 20160204
  2. METOPROLOL. [Suspect]
     Active Substance: METOPROLOL
     Indication: ATRIAL FIBRILLATION
     Route: 065

REACTIONS (5)
  - Headache [Recovered/Resolved]
  - Tendon rupture [Not Recovered/Not Resolved]
  - Feeling hot [Recovered/Resolved]
  - Drug ineffective [Unknown]
  - Flushing [Recovered/Resolved]

NARRATIVE: CASE EVENT DATE: 20160206
